FAERS Safety Report 4576275-5 (Version None)
Quarter: 2005Q1

REPORT INFORMATION
  Report Type: 
  Country: None (occurrence: None)
  Receive Date: 20050119
  Receipt Date: 20041005
  Transmission Date: 20050727
  Serious: Yes (Hospitalization)
  Sender: FDA-Public Use
  Company Number: A03200300860

PATIENT
  Age: 68 Year
  Sex: Male
  Weight: 85.2762 kg

DRUGS (3)
  1. PLAVIX [Suspect]
     Indication: STENT PLACEMENT
     Dosage: 75 MG QD - ORAL
     Route: 048
     Dates: start: 20030301, end: 20040901
  2. DILTIAZEM HYDROCHLORIDE [Concomitant]
  3. ACETYLSALICYLIC ACID [Concomitant]

REACTIONS (5)
  - CHEST PAIN [None]
  - DIARRHOEA [None]
  - DYSPNOEA [None]
  - FATIGUE [None]
  - MUSCLE INJURY [None]
